FAERS Safety Report 7998115-4 (Version None)
Quarter: 2011Q4

REPORT INFORMATION
  Report Type: 
  Country: None (occurrence: None)
  Receive Date: 20111221
  Receipt Date: 20110209
  Transmission Date: 20120403
  Serious: No
  Sender: FDA-Public Use
  Company Number: US-GLAXOSMITHKLINE-A0912701A

PATIENT
  Age: 50 Year
  Sex: Male

DRUGS (5)
  1. ASPIRIN [Concomitant]
  2. NEXIUM [Concomitant]
  3. LOVAZA [Suspect]
     Indication: HYPERLIPIDAEMIA
     Dosage: 1CAP PER DAY
     Route: 048
     Dates: start: 20100901
  4. CLARITIN [Concomitant]
  5. SIMVASTATIN [Concomitant]

REACTIONS (1)
  - SKIN ODOUR ABNORMAL [None]
